FAERS Safety Report 25776849 (Version 1)
Quarter: 2025Q3

REPORT INFORMATION
  Report Type: Spontaneous
  Country: US (occurrence: US)
  Receive Date: 20250909
  Receipt Date: 20250909
  Transmission Date: 20251020
  Serious: No
  Sender: DOMPE FARMACEUTICI
  Company Number: US-FARMAPROD-202503-0978

PATIENT
  Age: 82 Year
  Sex: Female

DRUGS (16)
  1. OXERVATE [Suspect]
     Active Substance: CENEGERMIN-BKBJ
     Indication: Neurotrophic keratopathy
     Route: 047
     Dates: start: 20250321
  2. REFRESH TEARS [Concomitant]
     Active Substance: CARBOXYMETHYLCELLULOSE SODIUM
  3. KRILL OIL [Concomitant]
     Active Substance: DIETARY SUPPLEMENT\KRILL OIL
  4. NM-6603 [Concomitant]
     Active Substance: NM-6603
  5. COLACE 2-IN-1 [Concomitant]
  6. BIOTIN [Concomitant]
     Active Substance: BIOTIN
  7. ZYRTEC [Concomitant]
     Active Substance: CETIRIZINE HYDROCHLORIDE
  8. ONE-A-DAY WOMEN^S 50 PLUS [Concomitant]
  9. CALCIUM 1, 000-VIT D3 [Concomitant]
  10. LATANOPROST [Concomitant]
     Active Substance: LATANOPROST
  11. MELOXICAM [Concomitant]
     Active Substance: MELOXICAM
  12. LOSARTAN POTASSIUM [Concomitant]
     Active Substance: LOSARTAN POTASSIUM
  13. GEMFIBROZIL [Concomitant]
     Active Substance: GEMFIBROZIL
  14. FUROSEMIDE [Concomitant]
     Active Substance: FUROSEMIDE
  15. OMEPRAZOLE [Concomitant]
     Active Substance: OMEPRAZOLE
  16. POTASSIUM CHLORIDE [Concomitant]
     Active Substance: POTASSIUM CHLORIDE

REACTIONS (1)
  - Eye pain [Not Recovered/Not Resolved]

NARRATIVE: CASE EVENT DATE: 20250322
